FAERS Safety Report 4472953-7 (Version None)
Quarter: 2004Q4

REPORT INFORMATION
  Report Type: 
  Country: None (occurrence: None)
  Receive Date: 20041013
  Receipt Date: 20041004
  Transmission Date: 20050328
  Serious: Yes (Other)
  Sender: FDA-Public Use
  Company Number: GB-ABBOTT-04P-167-0276207-00

PATIENT
  Age: 61 Year
  Sex: Male
  Weight: 75 kg

DRUGS (3)
  1. ISOPTIN [Suspect]
     Indication: WOLFF-PARKINSON-WHITE SYNDROME
     Route: 048
     Dates: start: 19990101
  2. TERBINAFINE HCL [Interacting]
     Indication: FUNGAL INFECTION
     Route: 048
     Dates: start: 20040222, end: 20040804
  3. RANITIDINE HYDROCHLORIDE [Concomitant]
     Indication: HIATUS HERNIA
     Route: 048
     Dates: start: 20020101

REACTIONS (4)
  - DRUG INTERACTION [None]
  - HEADACHE [None]
  - MALAISE [None]
  - PALPITATIONS [None]
